FAERS Safety Report 6224458-0 (Version None)
Quarter: 2009Q2

REPORT INFORMATION
  Report Type: 
  Country: None (occurrence: None)
  Receive Date: 20090612
  Receipt Date: 20090312
  Transmission Date: 20091009
  Serious: No
  Sender: FDA-Public Use
  Company Number: US-ABBOTT-09P-163-0563720-00

PATIENT
  Sex: Female
  Weight: 72.186 kg

DRUGS (10)
  1. HUMIRA [Suspect]
     Indication: RHEUMATOID ARTHRITIS
     Route: 058
     Dates: start: 20050101
  2. METHOTREXATE [Concomitant]
     Indication: RHEUMATOID ARTHRITIS
     Route: 048
  3. FOLIC ACID [Concomitant]
     Indication: VITAMIN SUPPLEMENTATION
     Route: 048
  4. ADVAIR HFA [Concomitant]
     Indication: EMPHYSEMA
     Dosage: 250
     Route: 055
  5. SPIRIVA [Concomitant]
     Indication: EMPHYSEMA
     Route: 055
  6. VESICARE [Concomitant]
     Indication: HYPERTONIC BLADDER
     Route: 048
  7. ALPRAZOLAM [Concomitant]
     Indication: ANXIOLYTIC THERAPY
     Route: 048
  8. TRAMADOL HCL [Concomitant]
     Indication: BACK INJURY
     Route: 048
  9. MOBIC [Concomitant]
     Indication: ARTHRITIS
     Route: 048
  10. VENTOLIN [Concomitant]
     Indication: DRUG USE FOR UNKNOWN INDICATION
     Route: 055

REACTIONS (1)
  - INJECTION SITE IRRITATION [None]
